FAERS Safety Report 11219074 (Version 1)
Quarter: 2015Q2

REPORT INFORMATION
  Report Type: Spontaneous
  Country: US (occurrence: US)
  Receive Date: 20150625
  Receipt Date: 20150625
  Transmission Date: 20150821
  Serious: Yes (Hospitalization)
  Sender: FDA-Public Use
  Company Number: US-PFIZER INC-2015205950

PATIENT
  Age: 60 Year
  Sex: Female

DRUGS (4)
  1. ECHOTHIOPHATE IODIDE [Suspect]
     Active Substance: ECHOTHIOPHATE IODIDE
     Indication: OPEN ANGLE GLAUCOMA
     Dosage: ONE DROP IN EACH EYE AT BEDTIME
     Route: 047
  2. OXTRIPHYLLINE [Concomitant]
     Active Substance: OXTRIPHYLLINE
     Indication: EMPHYSEMA
  3. DIGOXIN. [Concomitant]
     Active Substance: DIGOXIN
     Indication: CARDIAC FAILURE CONGESTIVE
  4. HYDROCHLOROTHIAZIDE. [Concomitant]
     Active Substance: HYDROCHLOROTHIAZIDE
     Indication: HYPERTENSION

REACTIONS (1)
  - Bronchospasm [Recovered/Resolved]
